FAERS Safety Report 4863951-X (Version None)
Quarter: 2005Q4

REPORT INFORMATION
  Report Type: 
  Country: None (occurrence: None)
  Receive Date: 20051222
  Receipt Date: 20051212
  Transmission Date: 20060501
  Serious: Yes (Hospitalization)
  Sender: FDA-Public Use
  Company Number: CH-BRISTOL-MYERS SQUIBB COMPANY-13214192

PATIENT
  Age: 69 Year
  Sex: Male
  Weight: 76 kg

DRUGS (2)
  1. CISPLATIN [Suspect]
     Indication: SMALL CELL LUNG CANCER STAGE UNSPECIFIED
     Route: 042
     Dates: start: 20051114, end: 20051114
  2. CAMPTOSAR [Suspect]
     Indication: SMALL CELL LUNG CANCER STAGE UNSPECIFIED
     Route: 042
     Dates: start: 20051114, end: 20051114

REACTIONS (3)
  - DEHYDRATION [None]
  - DIARRHOEA [None]
  - NEUTROPENIA [None]
